FAERS Safety Report 6522576-0 (Version None)
Quarter: 2009Q4

REPORT INFORMATION
  Report Type: 
  Country: None (occurrence: None)
  Receive Date: 20091230
  Receipt Date: 20091222
  Transmission Date: 20100525
  Serious: Yes (Death, Hospitalization)
  Sender: FDA-Public Use
  Company Number: FR-WYE-H12803909

PATIENT
  Age: 71 Year
  Sex: Male

DRUGS (9)
  1. AMIODARONE HCL [Suspect]
     Indication: DRUG USE FOR UNKNOWN INDICATION
     Route: 048
     Dates: start: 20090501
  2. PREVISCAN [Interacting]
     Indication: DRUG USE FOR UNKNOWN INDICATION
     Route: 048
     Dates: start: 20090301, end: 20090101
  3. PREVISCAN [Interacting]
     Route: 048
     Dates: start: 20090101
  4. INIPOMP [Concomitant]
  5. ZOLPIDEM TARTRATE [Concomitant]
  6. BIPRETERAX [Concomitant]
  7. METFORMIN HCL [Concomitant]
  8. KARDEGIC [Concomitant]
     Indication: DRUG USE FOR UNKNOWN INDICATION
     Route: 048
     Dates: start: 20090501
  9. BISOPROLOL [Concomitant]

REACTIONS (11)
  - BRAIN OEDEMA [None]
  - CONVULSION [None]
  - DEPRESSED LEVEL OF CONSCIOUSNESS [None]
  - DIABETIC HYPEROSMOLAR COMA [None]
  - DRUG INTERACTION [None]
  - INTERNATIONAL NORMALISED RATIO INCREASED [None]
  - LOSS OF CONSCIOUSNESS [None]
  - OVERDOSE [None]
  - RENAL FAILURE [None]
  - RESPIRATORY DISORDER [None]
  - SUBDURAL HAEMATOMA [None]
